FAERS Safety Report 9601277 (Version 1)
Quarter: 2013Q4

REPORT INFORMATION
  Report Type: Spontaneous
  Country: BR (occurrence: BR)
  Receive Date: 20131006
  Receipt Date: 20131006
  Transmission Date: 20140711
  Serious: Yes (Other)
  Sender: FDA-Public Use
  Company Number: PHHY2013BR111128

PATIENT
  Age: 86 Year
  Sex: Male

DRUGS (2)
  1. EXELON PATCH [Suspect]
     Indication: DEMENTIA WITH LEWY BODIES
     Dosage: ONE ADHESIVE DAILY (5CM)
     Route: 062
  2. SEROQUEL [Concomitant]
     Dosage: 400 MG, UNK

REACTIONS (3)
  - Condition aggravated [Recovered/Resolved]
  - Dementia with Lewy bodies [Recovered/Resolved]
  - Agitation [Recovered/Resolved]
